FAERS Safety Report 5661172-4 (Version None)
Quarter: 2008Q1

REPORT INFORMATION
  Report Type: 
  Country: None (occurrence: None)
  Receive Date: 20080306
  Receipt Date: 20080304
  Transmission Date: 20080703
  Serious: Yes (Hospitalization)
  Sender: FDA-Public Use
  Company Number: 100#08#2008-00974

PATIENT
  Age: 69 Year
  Sex: Female

DRUGS (10)
  1. TRAMADOL HCL [Suspect]
     Indication: DRUG USE FOR UNKNOWN INDICATION
     Dosage: 50 MG
     Route: 042
  2. CABERGOLINE [Suspect]
     Indication: RESTLESS LEGS SYNDROME
     Dosage: 2 MG
  3. PREGABALIN (PREGABALIN) [Concomitant]
  4. PROPOFOL [Concomitant]
  5. FENTANYL [Concomitant]
  6. ROCURONIUM BROMIDE [Concomitant]
  7. SEVOFLURANE [Concomitant]
  8. CEFAZOLIN [Concomitant]
  9. ACETAMINOPHEN [Concomitant]
  10. PARECOXIB (PARECOXIB) [Concomitant]

REACTIONS (3)
  - DRUG INTERACTION [None]
  - HYPERTENSION [None]
  - POST PROCEDURAL COMPLICATION [None]
